FAERS Safety Report 12675867 (Version 1)
Quarter: 2016Q3

REPORT INFORMATION
  Report Type: Spontaneous
  Country: US (occurrence: US)
  Receive Date: 20160823
  Receipt Date: 20160823
  Transmission Date: 20161109
  Serious: No
  Sender: FDA-Public Use
  Company Number: US-JAZZ-2016-US-006594

PATIENT
  Sex: Female

DRUGS (31)
  1. SALONPAS PAIN RELIEF [Concomitant]
     Active Substance: MENTHOL\METHYL SALICYLATE
  2. LEVAQUIN [Concomitant]
     Active Substance: LEVOFLOXACIN
  3. BETHANECHOL [Concomitant]
     Active Substance: BETHANECHOL
  4. ASPIRIN. [Concomitant]
     Active Substance: ASPIRIN
  5. LEVOFLOXACIN. [Concomitant]
     Active Substance: LEVOFLOXACIN
  6. PROZAC [Concomitant]
     Active Substance: FLUOXETINE HYDROCHLORIDE
  7. DEXILANT [Concomitant]
     Active Substance: DEXLANSOPRAZOLE
  8. NUVIGIL [Concomitant]
     Active Substance: ARMODAFINIL
  9. OXYCODONE [Concomitant]
     Active Substance: OXYCODONE
  10. ALVESCO [Concomitant]
     Active Substance: CICLESONIDE
  11. DOMPERIDONE [Concomitant]
     Active Substance: DOMPERIDONE
  12. TRIPLEFLEX [Concomitant]
  13. VITAMIN D [Concomitant]
     Active Substance: CHOLECALCIFEROL
  14. XYREM [Suspect]
     Active Substance: SODIUM OXYBATE
     Dosage: 3 G, BID
     Route: 048
     Dates: start: 201310
  15. DEXTROAMPHETAMINE. [Concomitant]
     Active Substance: DEXTROAMPHETAMINE
  16. PANTOPRAZOLE SODIUM. [Concomitant]
     Active Substance: PANTOPRAZOLE SODIUM
  17. RANITIDINE. [Concomitant]
     Active Substance: RANITIDINE
  18. SLOW-MAG [Concomitant]
     Active Substance: MAGNESIUM CHLORIDE
  19. XYREM [Suspect]
     Active Substance: SODIUM OXYBATE
     Indication: NARCOLEPSY
     Dosage: 2.25 G, BID
     Route: 048
     Dates: start: 201308, end: 201310
  20. VITAMIN B12 [Concomitant]
     Active Substance: CYANOCOBALAMIN
  21. RABEPRAZOLE SODIUM. [Concomitant]
     Active Substance: RABEPRAZOLE SODIUM
  22. PROAIR HFA [Concomitant]
     Active Substance: ALBUTEROL SULFATE
  23. FLEXERIL [Concomitant]
     Active Substance: CYCLOBENZAPRINE HYDROCHLORIDE
  24. XIFAXAN [Concomitant]
     Active Substance: RIFAXIMIN
  25. DOMPERIDONE [Concomitant]
     Active Substance: DOMPERIDONE
  26. CLARINEX [Concomitant]
     Active Substance: DESLORATADINE
  27. LEVOFLOXACIN. [Concomitant]
     Active Substance: LEVOFLOXACIN
  28. LIDODERM [Concomitant]
     Active Substance: LIDOCAINE
  29. PROZAC [Concomitant]
     Active Substance: FLUOXETINE HYDROCHLORIDE
  30. RANITIDINE. [Concomitant]
     Active Substance: RANITIDINE
  31. XIFAXAN [Concomitant]
     Active Substance: RIFAXIMIN

REACTIONS (2)
  - Physiotherapy [Unknown]
  - Muscular weakness [Not Recovered/Not Resolved]
